FAERS Safety Report 7601914-1 (Version None)
Quarter: 2011Q3

REPORT INFORMATION
  Report Type: 
  Country: None (occurrence: None)
  Receive Date: 20110711
  Receipt Date: 20110708
  Transmission Date: 20111222
  Serious: Yes (Other)
  Sender: FDA-Public Use
  Company Number: US-PFIZER INC-2011154641

PATIENT
  Age: 53 Year
  Sex: Female

DRUGS (3)
  1. KLONOPIN [Concomitant]
     Dosage: 2 MG, 1X/DAY
     Route: 048
     Dates: start: 20110707
  2. LYRICA [Suspect]
     Indication: SLEEP DISORDER
     Dosage: UNK
     Route: 048
     Dates: start: 20110707
  3. KLONOPIN [Concomitant]
     Dosage: 4 MG, 1X/DAY

REACTIONS (7)
  - DIPLOPIA [None]
  - GAIT DISTURBANCE [None]
  - NAUSEA [None]
  - THINKING ABNORMAL [None]
  - BALANCE DISORDER [None]
  - INSOMNIA [None]
  - DIZZINESS [None]
